FAERS Safety Report 14089412 (Version 1)
Quarter: 2017Q4

REPORT INFORMATION
  Report Type: Other
  Country: US (occurrence: US)
  Receive Date: 20171014
  Receipt Date: 20171014
  Transmission Date: 20180321
  Serious: Yes (Hospitalization, Other)
  Sender: FDA-Public Use
  Company Number: US-INTERCEPT-PMOCA2017001079

PATIENT

DRUGS (1)
  1. OCALIVA [Suspect]
     Active Substance: OBETICHOLIC ACID
     Dosage: 5 MG, QD

REACTIONS (6)
  - Tremor [Unknown]
  - Ascites [Unknown]
  - Abdominal distension [Unknown]
  - Pyrexia [Unknown]
  - Hepatic function abnormal [Unknown]
  - Chills [Unknown]
